FAERS Safety Report 4426751-0 (Version None)
Quarter: 2004Q3

REPORT INFORMATION
  Report Type: 
  Country: None (occurrence: None)
  Receive Date: 20040816
  Receipt Date: 20040805
  Transmission Date: 20050211
  Serious: Yes (Death, Other)
  Sender: FDA-Public Use
  Company Number: JP-JNJFOC-20040607704

PATIENT
  Sex: Male

DRUGS (20)
  1. LEUSTATIN [Suspect]
     Route: 041
  2. LEUSTATIN [Suspect]
     Route: 041
  3. RITUXIMAB [Concomitant]
     Route: 041
  4. RITUXIMAB [Concomitant]
     Route: 041
  5. MAGNESIUM OXIDE [Concomitant]
     Indication: CONSTIPATION
     Route: 049
  6. MECOBALAMIN [Concomitant]
     Indication: VITAMIN SUPPLEMENTATION
     Route: 049
  7. ISONIAZID [Concomitant]
     Indication: TUBERCULOSIS
     Route: 049
  8. ESTAZOLAM [Concomitant]
     Route: 049
  9. ITRACONAZOLE [Concomitant]
     Indication: FUNGAL INFECTION
     Route: 049
  10. SULFAMETHOXAZOLE + TRIMETHOPRIM [Concomitant]
     Route: 049
  11. SULFAMETHOXAZOLE + TRIMETHOPRIM [Concomitant]
     Indication: INFECTION
     Route: 049
  12. ANTIBIOTICS-RESISTANT LACTIC ACID BACTERIA [Concomitant]
     Route: 049
  13. PRULIFLOXACIN [Concomitant]
     Indication: INFECTION
     Route: 049
  14. MITOXANTRONE HYDROCHLORIDE [Concomitant]
     Route: 041
  15. GRANISETRON HYDROCHLORIDE [Concomitant]
  16. GRANISETRON HYDROCHLORIDE [Concomitant]
  17. NARTOGRASTIM [Concomitant]
     Route: 058
  18. NARTOGRASTIM [Concomitant]
     Route: 058
  19. NARTOGRASTIM [Concomitant]
     Route: 058
  20. NARTOGRASTIM [Concomitant]
     Route: 058

REACTIONS (5)
  - BLOOD LACTATE DEHYDROGENASE INCREASED [None]
  - LEUKOPENIA [None]
  - LYMPHOPENIA [None]
  - PROTEIN TOTAL DECREASED [None]
  - THROMBOCYTOPENIA [None]
